FAERS Safety Report 24953417 (Version 1)
Quarter: 2025Q1

REPORT INFORMATION
  Report Type: Spontaneous
  Country: US (occurrence: US)
  Receive Date: 20250211
  Receipt Date: 20250211
  Transmission Date: 20250409
  Serious: No
  Sender: SANDOZ
  Company Number: US-SANDOZ-SDZ2025US006420

PATIENT
  Sex: Female

DRUGS (1)
  1. ALBUTEROL SULFATE [Suspect]
     Active Substance: ALBUTEROL SULFATE
     Indication: Wheezing
     Dosage: 2 DF, QID
     Route: 055

REACTIONS (3)
  - Drug dose omission by device [Unknown]
  - Product delivery mechanism issue [Unknown]
  - Device material issue [Unknown]

NARRATIVE: CASE EVENT DATE: 20250130
